FAERS Safety Report 7305064-3 (Version None)
Quarter: 2011Q1

REPORT INFORMATION
  Report Type: 
  Country: None (occurrence: None)
  Receive Date: 20110222
  Receipt Date: 20110126
  Transmission Date: 20110831
  Serious: No
  Sender: FDA-Public Use
  Company Number: US-B.I. PHARMACEUTICALS,INC./RIDGEFIELD-2010-BP-14468BP

PATIENT
  Age: 72 Year
  Sex: Female
  Weight: 128.37 kg

DRUGS (6)
  1. CARDIZEM [Concomitant]
     Dosage: 120 MG
  2. ASA [Concomitant]
     Dosage: 325 MG
  3. CARVEDILOL [Concomitant]
     Dosage: 6.25 MG
  4. OMEPRAZOLE [Concomitant]
     Dosage: 20 MG
  5. LASIX [Concomitant]
     Dosage: 40 MG
  6. PRADAXA [Suspect]
     Indication: ATRIAL FIBRILLATION
     Dosage: 300 MG
     Dates: start: 20101122, end: 20101205

REACTIONS (2)
  - GASTROINTESTINAL DISORDER [None]
  - HAEMATURIA [None]
